FAERS Safety Report 16031806 (Version 8)
Quarter: 2020Q2

REPORT INFORMATION
  Report Type: Report from Study
  Country: US (occurrence: US)
  Receive Date: 20190304
  Receipt Date: 20200623
  Transmission Date: 20200713
  Serious: Yes (Hospitalization, Other)
  Sender: FDA-Public Use
  Company Number: US-ACTELION-A-US2018-167894

PATIENT
  Age: 36 Year
  Sex: Female
  Weight: 87.53 kg

DRUGS (8)
  1. SILDENAFIL. [Concomitant]
     Active Substance: SILDENAFIL
     Indication: PULMONARY ARTERIAL HYPERTENSION
  2. OPSUMIT [Suspect]
     Active Substance: MACITENTAN
     Dosage: 10 MG, QD
     Route: 048
  3. OPSUMIT [Suspect]
     Active Substance: MACITENTAN
     Indication: PULMONARY ARTERIAL HYPERTENSION
     Dosage: 10 MG, QD
     Route: 048
  4. VELETRI [Suspect]
     Active Substance: EPOPROSTENOL
     Dosage: 36 NG/KG, PER MIN
     Route: 042
  5. VELETRI [Suspect]
     Active Substance: EPOPROSTENOL
     Dosage: 30 NG/KG, PER MIN
     Route: 042
  6. VELETRI [Suspect]
     Active Substance: EPOPROSTENOL
     Dosage: 38 NG/KG, PER MIN
     Route: 042
  7. VELETRI [Suspect]
     Active Substance: EPOPROSTENOL
     Indication: PULMONARY ARTERIAL HYPERTENSION
     Dosage: 25 NG/KG, PER MIN
     Route: 042
  8. VELETRI [Suspect]
     Active Substance: EPOPROSTENOL
     Dosage: 40 NG/KG, PER MIN
     Route: 042

REACTIONS (20)
  - Abdominal pain upper [Not Recovered/Not Resolved]
  - Influenza [Unknown]
  - Device alarm issue [Unknown]
  - Pallor [Unknown]
  - Dehydration [Unknown]
  - Syncope [Unknown]
  - Transplant evaluation [Unknown]
  - Device malfunction [Unknown]
  - Pain [Unknown]
  - Dyspnoea exertional [Unknown]
  - Headache [Unknown]
  - Palpitations [Unknown]
  - Device issue [Unknown]
  - Device occlusion [Recovered/Resolved]
  - Dyspnoea at rest [Not Recovered/Not Resolved]
  - Nausea [Unknown]
  - Diarrhoea [Unknown]
  - Pain in extremity [Unknown]
  - Lung transplant [Unknown]
  - Catheter management [Unknown]

NARRATIVE: CASE EVENT DATE: 20190218
